FAERS Safety Report 10835603 (Version 1)
Quarter: 2015Q1

REPORT INFORMATION
  Report Type: Spontaneous
  Country: US (occurrence: US)
  Receive Date: 20150219
  Receipt Date: 20150219
  Transmission Date: 20150721
  Serious: Yes (Hospitalization)
  Sender: FDA-Public Use
  Company Number: US-ABBVIE-14P-163-1203794-00

PATIENT
  Age: 55 Year
  Sex: Male
  Weight: 84.9 kg

DRUGS (6)
  1. HUMIRA [Suspect]
     Active Substance: ADALIMUMAB
     Dosage: FOUR WEEKS AFTER 160 MG DOSE
     Dates: start: 2010, end: 201212
  2. HUMIRA [Suspect]
     Active Substance: ADALIMUMAB
     Dosage: ONE DOSE
     Dates: start: 201401, end: 201401
  3. HUMIRA [Suspect]
     Active Substance: ADALIMUMAB
     Dosage: FOUR WEEKS AFTER 160 MG DOSE
     Dates: start: 2014
  4. HUMIRA [Suspect]
     Active Substance: ADALIMUMAB
     Indication: CROHN^S DISEASE
     Dosage: ONE DOSE
     Dates: start: 2010
  5. HUMIRA [Suspect]
     Active Substance: ADALIMUMAB
     Dosage: ONE DOSE
     Dates: start: 2010
  6. HUMIRA [Suspect]
     Active Substance: ADALIMUMAB
     Dosage: ONE DOSE, TWO WEEKS AFTER 160 MG DOSE
     Dates: start: 2014, end: 2014

REACTIONS (5)
  - Bronchitis [Recovered/Resolved]
  - Colitis [Unknown]
  - Bronchopneumonia [Recovered/Resolved]
  - Influenza [Recovered/Resolved]
  - Abdominal pain [Recovering/Resolving]

NARRATIVE: CASE EVENT DATE: 201212
